FAERS Safety Report 9167307 (Version 1)
Quarter: 2013Q1

REPORT INFORMATION
  Report Type: Spontaneous
  Country: US (occurrence: None)
  Receive Date: 20130314
  Receipt Date: 20130314
  Transmission Date: 20140127
  Serious: No
  Sender: FDA-Public Use
  Company Number: None

PATIENT
  Age: 32 Year
  Sex: Female

DRUGS (1)
  1. FLAGYL [Suspect]
     Dosage: 500MG 1 BID ORAL
     Route: 048

REACTIONS (2)
  - Rash pruritic [None]
  - Rash generalised [None]
